FAERS Safety Report 7681053-4 (Version None)
Quarter: 2011Q3

REPORT INFORMATION
  Report Type: 
  Country: None (occurrence: None)
  Receive Date: 20110809
  Receipt Date: 20110725
  Transmission Date: 20111222
  Serious: Yes (Other)
  Sender: FDA-Public Use
  Company Number: PI-05896

PATIENT
  Age: 32 Year
  Sex: Female

DRUGS (1)
  1. CHLORAPREP [Suspect]
     Indication: THERAPEUTIC SKIN CARE TOPICAL
     Dosage: 3 ML, TWICE, TOPICAL
     Route: 061
     Dates: start: 20110715

REACTIONS (4)
  - APPLICATION SITE PAIN [None]
  - APPLICATION SITE BURN [None]
  - APPLICATION SITE ERYTHEMA [None]
  - BLISTER [None]
